FAERS Safety Report 9151478 (Version 2)
Quarter: 2013Q2

REPORT INFORMATION
  Report Type: Report from Study
  Country: US (occurrence: US)
  Receive Date: 20130308
  Receipt Date: 20130405
  Transmission Date: 20140414
  Serious: Yes (Other)
  Sender: FDA-Public Use
  Company Number: US-ROCHE-1076392

PATIENT
  Sex: Male

DRUGS (3)
  1. PEG-INTERFERON ALFA 2A [Suspect]
     Indication: HEPATITIS C
     Route: 050
     Dates: start: 20111021, end: 20120406
  2. RIBAVIRIN [Suspect]
     Indication: HEPATITIS C
     Route: 050
     Dates: start: 20111021, end: 20120415
  3. BI 201335 [Suspect]
     Indication: HEPATITIS C
     Route: 048
     Dates: end: 20120415

REACTIONS (2)
  - Abortion spontaneous [Unknown]
  - Exposure during pregnancy [Unknown]
